FAERS Safety Report 13179424 (Version 1)
Quarter: 2017Q1

REPORT INFORMATION
  Report Type: Report from Study
  Country: TR (occurrence: TR)
  Receive Date: 20170202
  Receipt Date: 20170202
  Transmission Date: 20170428
  Serious: Yes (Hospitalization, Disabling)
  Sender: FDA-Public Use
  Company Number: TR-PFIZER INC-2016498883

PATIENT
  Age: 67 Year
  Sex: Female
  Weight: 83 kg

DRUGS (19)
  1. CYCLOPHOSPHAMIDE. [Suspect]
     Active Substance: CYCLOPHOSPHAMIDE
     Indication: DIFFUSE LARGE B-CELL LYMPHOMA
     Dosage: 5 MG/KG, 1 IN 21 D
     Route: 042
     Dates: start: 20160923
  2. PREDNISONE. [Suspect]
     Active Substance: PREDNISONE
     Indication: DIFFUSE LARGE B-CELL LYMPHOMA
     Dosage: 100 MG, DAILY, 5 IN 21 D
     Route: 048
     Dates: start: 20160923
  3. EMOJECT [Concomitant]
     Indication: ANTIEMETIC SUPPORTIVE CARE
     Dosage: 10/2 MG/ML, 3 IN 1 D
     Route: 042
     Dates: start: 20160929, end: 20161007
  4. DOXORUBICIN HCL [Suspect]
     Active Substance: DOXORUBICIN HYDROCHLORIDE
     Indication: DIFFUSE LARGE B-CELL LYMPHOMA
     Dosage: 50 MG/M2, 1 IN 21 D
     Route: 042
     Dates: start: 20160923
  5. VFEND [Concomitant]
     Active Substance: VORICONAZOLE
     Indication: PYREXIA
     Dosage: 8 MG, 2 IN 1 D
     Route: 042
     Dates: start: 20160929, end: 20161007
  6. MOXIPEN [Concomitant]
     Indication: PYREXIA
     Dosage: 3X2
     Route: 042
     Dates: start: 20160929, end: 20161007
  7. BLINDED THERAPY [Suspect]
     Active Substance: INVESTIGATIONAL PRODUCT
     Indication: DIFFUSE LARGE B-CELL LYMPHOMA
     Dosage: 15 MG, DAILY, 14 IN 21 D
     Route: 048
     Dates: start: 20160923, end: 20160929
  8. KLOROBEN [Concomitant]
     Indication: DENTAL DISORDER PROPHYLAXIS
     Dosage: 15 ML, 3 IN 1 D
     Route: 048
     Dates: start: 20160929, end: 20161007
  9. GRATRYL [Concomitant]
     Indication: VOMITING
  10. FLOTIC [Concomitant]
     Indication: C-REACTIVE PROTEIN
  11. MOXIPEN [Concomitant]
     Indication: C-REACTIVE PROTEIN
  12. RITUXIMAB [Suspect]
     Active Substance: RITUXIMAB
     Indication: DIFFUSE LARGE B-CELL LYMPHOMA
     Dosage: 375 MG/M2, 1 IN 21 D
     Route: 042
     Dates: start: 20160923
  13. FUNGOSTATIN [Concomitant]
     Indication: CANDIDA INFECTION
     Dosage: U/ML, 3 IN 1 D
     Route: 048
  14. ESOBAX [Concomitant]
     Indication: PROPHYLAXIS
     Dosage: 80 MG, 2 IN 1 D
     Route: 042
     Dates: start: 20161001, end: 20161007
  15. VINCRISTINE SULFATE. [Suspect]
     Active Substance: VINCRISTINE SULFATE
     Indication: DIFFUSE LARGE B-CELL LYMPHOMA
     Dosage: 1.4 MG/M2, 1 IN 21 D
     Route: 042
     Dates: start: 20160923
  16. GRATRYL [Concomitant]
     Indication: NAUSEA
     Dosage: 3/3 MG/ML, 1 IN 1 D
     Route: 042
     Dates: start: 20160929, end: 20161007
  17. LEVOTIRON [Concomitant]
     Active Substance: LEVOTHYROXINE SODIUM
     Indication: HYPOTHYROIDISM
     Dosage: 1X2.5
     Route: 048
     Dates: start: 2006
  18. FLOTIC [Concomitant]
     Indication: PYREXIA
     Dosage: 200/100 MG/ML, 2X2
     Route: 042
     Dates: start: 20161005, end: 20161007
  19. VFEND [Concomitant]
     Active Substance: VORICONAZOLE
     Indication: C-REACTIVE PROTEIN

REACTIONS (2)
  - Febrile neutropenia [Recovered/Resolved]
  - Splenic necrosis [Recovered/Resolved]

NARRATIVE: CASE EVENT DATE: 20160929
